FAERS Safety Report 13446969 (Version 2)
Quarter: 2019Q1

REPORT INFORMATION
  Report Type: Spontaneous
  Country: US (occurrence: US)
  Receive Date: 20170417
  Receipt Date: 20190306
  Transmission Date: 20190417
  Serious: No
  Sender: FDA-Public Use
  Company Number: US-PFIZER INC-2017158990

PATIENT
  Sex: Female

DRUGS (1)
  1. NITROGLYCERIN. [Suspect]
     Active Substance: NITROGLYCERIN
     Indication: CHEST PAIN
     Dosage: 1 DF (SUBLINGUAL TABLET), EVERY 5 MIN AS NEEDED, DO NOT EXCEED 3 DOSES IN 15 MIN.
     Route: 060

REACTIONS (2)
  - Drug hypersensitivity [Unknown]
  - Vomiting projectile [Unknown]
